FAERS Safety Report 10031582 (Version 1)
Quarter: 2014Q1

REPORT INFORMATION
  Report Type: Spontaneous
  Country: US (occurrence: US)
  Receive Date: 20140324
  Receipt Date: 20140324
  Transmission Date: 20141002
  Serious: No
  Sender: FDA-Public Use
  Company Number: US-PFIZER INC-2014081298

PATIENT
  Age: 22 Year
  Sex: Female
  Weight: 86.17 kg

DRUGS (3)
  1. LYRICA [Suspect]
     Indication: NEUROPATHY PERIPHERAL
     Dosage: 50 MG, 3X/DAY
  2. NORTRIPTYLINE [Concomitant]
     Indication: MIGRAINE
     Dosage: 20 MG, DAILY
  3. CIMETIDINE [Concomitant]
     Indication: GASTRIC DISORDER
     Dosage: 600 MG, 2X/DAY

REACTIONS (3)
  - Hyperhidrosis [Unknown]
  - Erythema [Unknown]
  - Feeling hot [Unknown]
